FAERS Safety Report 17603252 (Version 14)
Quarter: 2025Q3

REPORT INFORMATION
  Report Type: Spontaneous
  Country: EU (occurrence: EU)
  Receive Date: 20200331
  Receipt Date: 20250922
  Transmission Date: 20251020
  Serious: Yes (Death, Hospitalization, Other)
  Sender: GLAXOSMITHKLINE
  Company Number: None

PATIENT
  Age: 71 Year
  Sex: Male

DRUGS (163)
  1. SEREVENT DISKUS [Suspect]
     Active Substance: SALMETEROL XINAFOATE
     Indication: Product used for unknown indication
     Dosage: 1 DF, BID (1 DF,BID (1 PUFF) (ONCE EVERY 12HOURS))
  2. SEREVENT DISKUS [Suspect]
     Active Substance: SALMETEROL XINAFOATE
     Dosage: 2 DF, BID
  3. SEREVENT DISKUS [Suspect]
     Active Substance: SALMETEROL XINAFOATE
     Dosage: 2 DF, BID (2 DF, Q12H)
  4. SEREVENT DISKUS [Suspect]
     Active Substance: SALMETEROL XINAFOATE
     Dosage: 1 DF, BID
  5. SEREVENT DISKUS [Suspect]
     Active Substance: SALMETEROL XINAFOATE
     Dosage: 1 DF, BID
  6. SEREVENT DISKUS [Suspect]
     Active Substance: SALMETEROL XINAFOATE
     Dosage: 2 DF, QD
  7. SEREVENT DISKUS [Suspect]
     Active Substance: SALMETEROL XINAFOATE
     Dosage: 4 DF, QD
  8. SEREVENT DISKUS [Suspect]
     Active Substance: SALMETEROL XINAFOATE
     Dosage: 4 DF, QD
  9. SEREVENT DISKUS [Suspect]
     Active Substance: SALMETEROL XINAFOATE
     Dosage: 4 DF, QD
  10. ALBUTEROL [Suspect]
     Active Substance: ALBUTEROL
     Indication: Product used for unknown indication
     Dosage: 1 DF, BID
  11. ALBUTEROL [Suspect]
     Active Substance: ALBUTEROL
     Dosage: 2 DF, QD
  12. ALBUTEROL [Suspect]
     Active Substance: ALBUTEROL
     Dosage: 2 DF, QD
  13. ALBUTEROL [Suspect]
     Active Substance: ALBUTEROL
     Dosage: 2 DF, QD
  14. ALBUTEROL [Suspect]
     Active Substance: ALBUTEROL
     Dosage: 1 DF, QD
  15. ALBUTEROL [Suspect]
     Active Substance: ALBUTEROL
  16. ALBUTEROL [Suspect]
     Active Substance: ALBUTEROL
  17. ALBUTEROL [Suspect]
     Active Substance: ALBUTEROL
     Dosage: 2 DF, QD
  18. SALMETEROL XINAFOATE [Suspect]
     Active Substance: SALMETEROL XINAFOATE
     Indication: Product used for unknown indication
     Dosage: 1 DF, BID
  19. SALMETEROL XINAFOATE [Suspect]
     Active Substance: SALMETEROL XINAFOATE
     Dosage: 1 DF, BID
  20. SALMETEROL XINAFOATE [Suspect]
     Active Substance: SALMETEROL XINAFOATE
     Dosage: 2 DF, QD
  21. SALMETEROL XINAFOATE [Suspect]
     Active Substance: SALMETEROL XINAFOATE
     Dosage: 2 DF, QD
  22. ALBUTEROL [Suspect]
     Active Substance: ALBUTEROL
     Indication: Product used for unknown indication
     Dosage: 1 DF, BID
  23. ALBUTEROL [Suspect]
     Active Substance: ALBUTEROL
     Dosage: 1 DF, BID
  24. ALBUTEROL [Suspect]
     Active Substance: ALBUTEROL
     Dosage: 2 DF, QD
  25. ALTACE [Suspect]
     Active Substance: RAMIPRIL
     Indication: Product used for unknown indication
     Dosage: 5 MG, QD
  26. ALTACE [Suspect]
     Active Substance: RAMIPRIL
     Dosage: 5 MG, QD
  27. ALTACE [Suspect]
     Active Substance: RAMIPRIL
  28. ZOPICLONE [Suspect]
     Active Substance: ZOPICLONE
     Indication: Product used for unknown indication
     Dosage: 15 MG, QD
  29. ZOPICLONE [Suspect]
     Active Substance: ZOPICLONE
     Dosage: 15 MG, QD
  30. OMEPRAZOLE [Suspect]
     Active Substance: OMEPRAZOLE
     Indication: Product used for unknown indication
     Dosage: 20 MG, QD
  31. OMEPRAZOLE [Suspect]
     Active Substance: OMEPRAZOLE
     Dosage: 20 MG, QD
  32. NITROGLYCERIN [Suspect]
     Active Substance: NITROGLYCERIN
     Indication: Product used for unknown indication
     Dosage: 10 MG, QD
     Route: 065
  33. NITROGLYCERIN [Suspect]
     Active Substance: NITROGLYCERIN
     Route: 065
  34. NITROGLYCERIN [Suspect]
     Active Substance: NITROGLYCERIN
     Dosage: 10 MG, QD
     Route: 065
  35. TRIHEXYPHENIDYL HYDROCHLORIDE [Suspect]
     Active Substance: TRIHEXYPHENIDYL HYDROCHLORIDE
     Indication: Product used for unknown indication
     Dosage: 1 MG, QD
  36. TRIHEXYPHENIDYL HYDROCHLORIDE [Suspect]
     Active Substance: TRIHEXYPHENIDYL HYDROCHLORIDE
     Dosage: 1 DF, QD
  37. TRIHEXYPHENIDYL HYDROCHLORIDE [Suspect]
     Active Substance: TRIHEXYPHENIDYL HYDROCHLORIDE
     Dosage: 1 DF, QD
  38. ACETAMINOPHEN [Suspect]
     Active Substance: ACETAMINOPHEN
     Indication: Product used for unknown indication
     Dosage: 200 MG, QD
  39. ACETAMINOPHEN [Suspect]
     Active Substance: ACETAMINOPHEN
  40. ACETAMINOPHEN [Suspect]
     Active Substance: ACETAMINOPHEN
     Dosage: 400 MG, QD
  41. ACETAMINOPHEN [Suspect]
     Active Substance: ACETAMINOPHEN
     Dosage: 2000 MG, QD
  42. LASIX [Suspect]
     Active Substance: FUROSEMIDE
     Indication: Product used for unknown indication
     Dosage: 40 MG, QD
  43. LASIX [Suspect]
     Active Substance: FUROSEMIDE
     Dosage: 40 MG, QD
  44. ESOMEPRAZOLE SODIUM [Suspect]
     Active Substance: ESOMEPRAZOLE SODIUM
     Indication: Product used for unknown indication
     Dosage: 20 MG, QD
  45. OMEPRAZOLE [Suspect]
     Active Substance: OMEPRAZOLE
     Indication: Product used for unknown indication
     Dosage: 20 MG, QD
  46. OMEPRAZOLE [Suspect]
     Active Substance: OMEPRAZOLE
  47. POLYETHYLENE GLYCOL 3350 [Suspect]
     Active Substance: POLYETHYLENE GLYCOL 3350
     Indication: Product used for unknown indication
     Dosage: 2 DF, QD
  48. ZOCOR [Suspect]
     Active Substance: SIMVASTATIN
     Indication: Product used for unknown indication
     Dosage: 20 MG, QD
  49. NITROGLYCERIN [Suspect]
     Active Substance: NITROGLYCERIN
     Indication: Product used for unknown indication
     Dosage: 10 MG, QD(10 MILLIGRAM, QD)
     Route: 065
  50. NITROGLYCERIN [Suspect]
     Active Substance: NITROGLYCERIN
     Dosage: 10 MG, QD
     Route: 065
  51. NITROGLYCERIN [Suspect]
     Active Substance: NITROGLYCERIN
     Dosage: 10 MG, QD
     Route: 065
  52. POLYETHYLENE GLYCOLS [Suspect]
     Active Substance: POLYETHYLENE GLYCOLS
     Indication: Product used for unknown indication
     Dosage: 2 DF, QD 2 DOSAGE FORM, 1/DAY
  53. ESOMEPRAZOLE MAGNESIUM [Suspect]
     Active Substance: ESOMEPRAZOLE MAGNESIUM
     Indication: Product used for unknown indication
     Dosage: 20 MG, QD (20 MG, QD)
  54. ESOMEPRAZOLE MAGNESIUM [Suspect]
     Active Substance: ESOMEPRAZOLE MAGNESIUM
     Dosage: 20 MG, QD
  55. PREDNAZOLINE [Suspect]
     Active Substance: PREDNAZOLINE
     Indication: Product used for unknown indication
     Dosage: 1 DF, QD
  56. PREDNAZOLINE [Suspect]
     Active Substance: PREDNAZOLINE
     Dosage: 1 DF, QD (1 PUFF, QD)
  57. PREDNAZOLINE [Suspect]
     Active Substance: PREDNAZOLINE
     Dosage: UNK, QD
  58. PREDNAZOLINE [Suspect]
     Active Substance: PREDNAZOLINE
     Dosage: 1 DF, QD
  59. PREDNAZOLINE [Suspect]
     Active Substance: PREDNAZOLINE
     Route: 065
  60. PREDNAZOLINE [Suspect]
     Active Substance: PREDNAZOLINE
     Dosage: 1 DF, QD
  61. VERAPAMIL HYDROCHLORIDE [Suspect]
     Active Substance: VERAPAMIL HYDROCHLORIDE
     Indication: Product used for unknown indication
     Dosage: UNK, QD
  62. VERAPAMIL HYDROCHLORIDE [Suspect]
     Active Substance: VERAPAMIL HYDROCHLORIDE
     Dosage: 240 MG, QD
  63. PEG 3350 [Suspect]
     Active Substance: POLYETHYLENE GLYCOL 3350
     Indication: Product used for unknown indication
     Dosage: 2 DF, QD
  64. ASPIRIN LYSINE [Suspect]
     Active Substance: ASPIRIN LYSINE
     Indication: Product used for unknown indication
     Dosage: 20 MG, QD(20.000MG QD)
  65. CLOBAZAM [Suspect]
     Active Substance: CLOBAZAM
     Indication: Product used for unknown indication
     Dosage: 20 MG, QD
  66. CLOBAZAM [Suspect]
     Active Substance: CLOBAZAM
     Dosage: 20 MG, QD
  67. ISOPTIN [Suspect]
     Active Substance: VERAPAMIL HYDROCHLORIDE
     Indication: Product used for unknown indication
     Dosage: 240 MG, QD
  68. ASPIRIN LYSINE [Suspect]
     Active Substance: ASPIRIN LYSINE
     Indication: Product used for unknown indication
     Dosage: 20 MG, QD
  69. ASPIRIN LYSINE [Suspect]
     Active Substance: ASPIRIN LYSINE
     Dosage: 250 MG, QD
     Route: 065
  70. ASPIRIN LYSINE [Suspect]
     Active Substance: ASPIRIN LYSINE
     Dosage: 20 MG, QD
  71. ASPIRIN LYSINE [Suspect]
     Active Substance: ASPIRIN LYSINE
     Dosage: 250 MG, QD
     Route: 065
  72. MIANSERIN HYDROCHLORIDE [Suspect]
     Active Substance: MIANSERIN HYDROCHLORIDE
     Indication: Product used for unknown indication
     Dosage: 60 MG, QD
  73. MIANSERIN HYDROCHLORIDE [Suspect]
     Active Substance: MIANSERIN HYDROCHLORIDE
     Dosage: 60 MG, QD (60.000MG QD)
  74. MIANSERIN HYDROCHLORIDE [Suspect]
     Active Substance: MIANSERIN HYDROCHLORIDE
     Dosage: 60 MG, QD
  75. CLOBAZAM [Suspect]
     Active Substance: CLOBAZAM
     Indication: Product used for unknown indication
     Dosage: 20 MG, QD
  76. CLOBAZAM [Suspect]
     Active Substance: CLOBAZAM
     Dosage: UNK UNK, QD
  77. CLOBAZAM [Suspect]
     Active Substance: CLOBAZAM
     Dosage: UNK UNK, QD
  78. CLOBAZAM [Suspect]
     Active Substance: CLOBAZAM
     Dosage: UNK UNK, TID
  79. CLOBAZAM [Suspect]
     Active Substance: CLOBAZAM
     Dosage: UNK UNK, TID
  80. CLOBAZAM [Suspect]
     Active Substance: CLOBAZAM
     Dosage: UNK UNK, TID
  81. CELEBREX [Suspect]
     Active Substance: CELECOXIB
     Indication: Product used for unknown indication
     Route: 065
  82. CELEBREX [Suspect]
     Active Substance: CELECOXIB
     Route: 065
  83. CELEBREX [Suspect]
     Active Substance: CELECOXIB
     Route: 065
  84. RIVOTRIL [Suspect]
     Active Substance: CLONAZEPAM
     Indication: Product used for unknown indication
     Dosage: 4 MG, QD
  85. NITROGLYCERIN [Suspect]
     Active Substance: NITROGLYCERIN
     Indication: Product used for unknown indication
     Dosage: 10 MG, QD
  86. NITROGLYCERIN [Suspect]
     Active Substance: NITROGLYCERIN
  87. NITROGLYCERIN [Suspect]
     Active Substance: NITROGLYCERIN
     Dosage: 10 MG, QD
  88. NITROGLYCERIN [Suspect]
     Active Substance: NITROGLYCERIN
     Dosage: 10 MG, QD
  89. NITROGLYCERIN [Suspect]
     Active Substance: NITROGLYCERIN
     Dosage: 10 MG, QD
  90. PIPAMPERONE [Suspect]
     Active Substance: PIPAMPERONE
     Indication: Product used for unknown indication
     Dosage: 20 MG, QD
  91. PIPAMPERONE [Suspect]
     Active Substance: PIPAMPERONE
     Dosage: 20 MG, QD
  92. DIACEREIN [Suspect]
     Active Substance: DIACEREIN
     Indication: Product used for unknown indication
     Dosage: 100 MG, BID
  93. DIACEREIN [Suspect]
     Active Substance: DIACEREIN
     Dosage: 50 MG, BID,  2X/DAY (ONCE EVERY 12HOURS)
  94. DIACEREIN [Suspect]
     Active Substance: DIACEREIN
     Dosage: 100 MG, BID
  95. DIACEREIN [Suspect]
     Active Substance: DIACEREIN
     Dosage: 50 MG, BID,  2X/DAY (ONCE EVERY 12HOURS)
  96. DIACEREIN [Suspect]
     Active Substance: DIACEREIN
     Dosage: 100 MG, BID
  97. DIACEREIN [Suspect]
     Active Substance: DIACEREIN
     Dosage: 200 MG, QD
  98. DIACEREIN [Suspect]
     Active Substance: DIACEREIN
     Dosage: 200 MG, QD
  99. TREMIN [Suspect]
     Active Substance: TRIHEXYPHENIDYL HYDROCHLORIDE
     Indication: Product used for unknown indication
     Dosage: 1 MG, QD
  100. TREMIN [Suspect]
     Active Substance: TRIHEXYPHENIDYL HYDROCHLORIDE
     Dosage: 1 DF, QD
  101. OMEPRAZOLE MAGNESIUM [Suspect]
     Active Substance: OMEPRAZOLE MAGNESIUM
     Indication: Product used for unknown indication
     Route: 065
  102. OMEPRAZOLE MAGNESIUM [Suspect]
     Active Substance: OMEPRAZOLE MAGNESIUM
     Dosage: 5 MG, QD
  103. OMEPRAZOLE MAGNESIUM [Suspect]
     Active Substance: OMEPRAZOLE MAGNESIUM
     Dosage: 20 MG, QD
  104. PROPRANOLOL [Suspect]
     Active Substance: PROPRANOLOL HYDROCHLORIDE
     Indication: Product used for unknown indication
     Dosage: 20 MG, QD
  105. PROPRANOLOL [Suspect]
     Active Substance: PROPRANOLOL HYDROCHLORIDE
     Dosage: UNK UNK, BID
  106. PROPRANOLOL [Suspect]
     Active Substance: PROPRANOLOL HYDROCHLORIDE
     Dosage: 20 MG, QD
  107. ASPIRIN [Suspect]
     Active Substance: ASPIRIN
     Indication: Product used for unknown indication
     Dosage: 250 MG, QD
  108. ASPIRIN [Suspect]
     Active Substance: ASPIRIN
     Dosage: 200 MG, QD
  109. ASPIRIN [Suspect]
     Active Substance: ASPIRIN
     Dosage: 20 MG, QD
  110. ASPIRIN [Suspect]
     Active Substance: ASPIRIN
     Dosage: 20 MG, QD
  111. ASPIRIN [Suspect]
     Active Substance: ASPIRIN
     Dosage: 20 MG, QD
  112. ASPIRIN [Suspect]
     Active Substance: ASPIRIN
     Dosage: 250 MG, QD
  113. ASPIRIN [Suspect]
     Active Substance: ASPIRIN
     Dosage: 250 MG, QD
  114. ASPIRIN [Suspect]
     Active Substance: ASPIRIN
     Route: 065
  115. ACETAMINOPHEN [Suspect]
     Active Substance: ACETAMINOPHEN
     Indication: Product used for unknown indication
     Dosage: 100 MG, BID (100 MG, Q12H)
  116. ACETAMINOPHEN [Suspect]
     Active Substance: ACETAMINOPHEN
     Dosage: 200 MG, BID
  117. ACETAMINOPHEN [Suspect]
     Active Substance: ACETAMINOPHEN
  118. ACETAMINOPHEN [Suspect]
     Active Substance: ACETAMINOPHEN
     Dosage: 2000 MG, QD
  119. ACETAMINOPHEN [Suspect]
     Active Substance: ACETAMINOPHEN
     Dosage: 200 MG, BID
  120. ACETAMINOPHEN [Suspect]
     Active Substance: ACETAMINOPHEN
     Dosage: 200 MG, QD
  121. ACETAMINOPHEN [Suspect]
     Active Substance: ACETAMINOPHEN
     Dosage: 100 MG, BID
  122. ACETAMINOPHEN [Suspect]
     Active Substance: ACETAMINOPHEN
     Dosage: 400 MG, QD
  123. ACETAMINOPHEN [Suspect]
     Active Substance: ACETAMINOPHEN
     Dosage: 1000 MG, BID
  124. ACETAMINOPHEN [Suspect]
     Active Substance: ACETAMINOPHEN
     Dosage: 4000 MG, BID
  125. ACETAMINOPHEN [Suspect]
     Active Substance: ACETAMINOPHEN
     Dosage: 1 DF, BID
  126. ACETAMINOPHEN [Suspect]
     Active Substance: ACETAMINOPHEN
     Dosage: 1000 MG, BID
  127. ACETAMINOPHEN [Suspect]
     Active Substance: ACETAMINOPHEN
     Dosage: 100 MG, BID
  128. POLYETHYLENE GLYCOL [Suspect]
     Active Substance: POLYETHYLENE GLYCOL
     Indication: Product used for unknown indication
     Dosage: 2 DF, QD
     Route: 065
  129. POLYETHYLENE GLYCOL [Suspect]
     Active Substance: POLYETHYLENE GLYCOL
     Dosage: 2 DF, QD
     Route: 065
  130. CELECOXIB [Suspect]
     Active Substance: CELECOXIB
     Indication: Product used for unknown indication
     Route: 065
  131. PROPAFENONE HYDROCHLORIDE [Suspect]
     Active Substance: PROPAFENONE HYDROCHLORIDE
     Indication: Product used for unknown indication
     Dosage: 10 MG, TID (10 MG, 3X/DAY (ONCE EVERY 8HOURS))
  132. PROPAFENONE HYDROCHLORIDE [Suspect]
     Active Substance: PROPAFENONE HYDROCHLORIDE
     Dosage: 30 MG, TID
  133. FUROSEMIDE [Suspect]
     Active Substance: FUROSEMIDE
     Indication: Product used for unknown indication
     Dosage: 40 MG, QD
  134. FUROSEMIDE [Suspect]
     Active Substance: FUROSEMIDE
     Dosage: 40 MG, QD
  135. FUROSEMIDE [Suspect]
     Active Substance: FUROSEMIDE
     Dosage: 40 MG, QD
  136. CLONAZEPAM [Suspect]
     Active Substance: CLONAZEPAM
     Indication: Product used for unknown indication
     Dosage: 4 MG, QD
  137. CLONAZEPAM [Suspect]
     Active Substance: CLONAZEPAM
     Dosage: 30 MG, QD
  138. CLONAZEPAM [Suspect]
     Active Substance: CLONAZEPAM
     Dosage: 30 MG, QD
  139. CLONAZEPAM [Suspect]
     Active Substance: CLONAZEPAM
     Dosage: UNK, QD
  140. CLONAZEPAM [Suspect]
     Active Substance: CLONAZEPAM
     Dosage: 4 MG, QD
  141. RAMIPRIL [Suspect]
     Active Substance: RAMIPRIL
     Indication: Product used for unknown indication
     Dosage: 5 MG, QD (5 MG, QD5 MILLIGRAM, 1/DAY)
  142. SIMVASTATIN [Suspect]
     Active Substance: SIMVASTATIN
     Indication: Product used for unknown indication
     Dosage: UNK UNK, QD
  143. SIMVASTATIN [Suspect]
     Active Substance: SIMVASTATIN
     Dosage: 20 MG, QD
  144. SIMVASTATIN [Suspect]
     Active Substance: SIMVASTATIN
     Dosage: 20 MG, QD
  145. ASPIRIN DL-LYSINE\GLYCINE [Suspect]
     Active Substance: ASPIRIN DL-LYSINE\GLYCINE
     Indication: Product used for unknown indication
     Route: 065
  146. ASPIRIN LYSINE [Suspect]
     Active Substance: ASPIRIN LYSINE
     Indication: Product used for unknown indication
     Dosage: 20 MG, QD
  147. CELECOXIB [Suspect]
     Active Substance: CELECOXIB
     Indication: Product used for unknown indication
     Route: 065
  148. NITROGLYCERIN [Suspect]
     Active Substance: NITROGLYCERIN
     Indication: Product used for unknown indication
     Dosage: 10 MG, QD
     Route: 065
  149. NITROGLYCERIN [Suspect]
     Active Substance: NITROGLYCERIN
     Dosage: 10 MG, QD
     Route: 065
  150. NITROGLYCERIN [Suspect]
     Active Substance: NITROGLYCERIN
     Dosage: 10 MG, QD
     Route: 065
  151. NITROGLYCERIN [Suspect]
     Active Substance: NITROGLYCERIN
     Route: 065
  152. NITROGLYCERIN [Suspect]
     Active Substance: NITROGLYCERIN
     Route: 065
  153. CELECOXIB [Suspect]
     Active Substance: CELECOXIB
     Indication: Product used for unknown indication
     Route: 065
  154. ALBUTEROL [Suspect]
     Active Substance: ALBUTEROL
     Indication: Product used for unknown indication
     Dosage: 1 DF, QD
     Route: 065
  155. OXYMETAZOLINE HYDROCHLORIDE\PREDNISOLONE SODIUM PHOSPHATE [Suspect]
     Active Substance: OXYMETAZOLINE HYDROCHLORIDE\PREDNISOLONE SODIUM PHOSPHATE
     Indication: Product used for unknown indication
     Dosage: 1 DF, QD (1 DF, 1X/DAY/1 PUFF, QD)
  156. OXYGEN [Concomitant]
     Active Substance: OXYGEN
     Indication: Product used for unknown indication
     Route: 065
  157. Deturgylone [Concomitant]
     Indication: Product used for unknown indication
     Dosage: 1 DF, QD
  158. Deturgylone [Concomitant]
     Dosage: 1 DF, QD (1 DOSAGE FORM, 1/DAY)
  159. Deturgylone [Concomitant]
     Dosage: 1 DF, QD (1 DOSAGE FORM, 1/DAY)
  160. Deturgylone [Concomitant]
     Dosage: 1 DF, QD (1 DOSAGE FORM, 1/DAY)
  161. Deturgylone [Concomitant]
     Dosage: 1 DF, QD (1 DOSAGE FORM, 1/DAY)
  162. Deturgylone [Concomitant]
     Dosage: 1 DF, QD
  163. OXYCODONE HYDROCHLORIDE\OXYCODONE TEREPHTHALATE [Concomitant]
     Active Substance: OXYCODONE HYDROCHLORIDE\OXYCODONE TEREPHTHALATE
     Indication: Product used for unknown indication
     Route: 065

REACTIONS (13)
  - Cerebrovascular accident [Fatal]
  - Cerebral artery thrombosis [Fatal]
  - Disease recurrence [Fatal]
  - Ischaemic stroke [Fatal]
  - Hemiplegia [Fatal]
  - Respiratory failure [Fatal]
  - Respiratory distress [Fatal]
  - Nausea [Fatal]
  - Brain scan abnormal [Fatal]
  - Areflexia [Fatal]
  - Facial paralysis [Fatal]
  - Off label use [Fatal]
  - Product use issue [Fatal]
